FAERS Safety Report 12501280 (Version 6)
Quarter: 2021Q1

REPORT INFORMATION
  Report Type: Spontaneous
  Country: US (occurrence: US)
  Receive Date: 20160627
  Receipt Date: 20210127
  Transmission Date: 20210419
  Serious: Yes (Other)
  Sender: FDA-Public Use
  Company Number: US-PFIZER INC-2016291998

PATIENT
  Age: 52 Year
  Sex: Male
  Weight: 113.4 kg

DRUGS (17)
  1. LYRICA [Suspect]
     Active Substance: PREGABALIN
     Indication: HYPOAESTHESIA
     Dosage: 75 MG, 3X/DAY
     Route: 048
     Dates: start: 2013
  2. LYRICA [Suspect]
     Active Substance: PREGABALIN
     Indication: BURNING SENSATION
     Dosage: 300 MG, 2X/DAY
     Route: 048
  3. OXYCODONE [Concomitant]
     Active Substance: OXYCODONE
     Indication: PAIN
  4. AMITRIPTYLINE HCL [Concomitant]
     Active Substance: AMITRIPTYLINE
     Indication: SLEEP DISORDER
     Dosage: 25 MG, 1X/DAY[ONE TABLET A HALF AN HOUR BEFORE BED]
     Route: 048
  5. XANAX [Concomitant]
     Active Substance: ALPRAZOLAM
     Indication: ANXIETY
     Dosage: 2 MG, AS NEEDED
     Route: 048
  6. MORPHINE SULFATE. [Concomitant]
     Active Substance: MORPHINE SULFATE
     Dosage: 45 MG, DAILY (2 TABLETS IN THE MORNING AND ONE TABLET AROUND 7 PM, BY MOUTH]
     Route: 048
  7. ALPRAZOLAM. [Concomitant]
     Active Substance: ALPRAZOLAM
     Indication: ANXIETY
     Dosage: 2 MG, DAILY [HALF TABLET TWICE A DAY]
     Route: 048
  8. MORPHINE [Concomitant]
     Active Substance: MORPHINE
     Indication: BACK DISORDER
     Dosage: 30 MG, 2X/DAY, EXTENDED RELEASE
     Route: 048
  9. CYMBALTA [Concomitant]
     Active Substance: DULOXETINE HYDROCHLORIDE
     Indication: MENTAL DISORDER
     Dosage: 100 MG, 1X/DAY
     Route: 048
  10. OXYCODONE [Concomitant]
     Active Substance: OXYCODONE
     Indication: BACK DISORDER
     Dosage: 10 MG TWO TABLETS BY MOUTH TWICE DAILY, AS NEEDED
     Route: 048
  11. OXYCODONE HYDROCHLORIDE. [Concomitant]
     Active Substance: OXYCODONE HYDROCHLORIDE
     Indication: PAIN
     Dosage: UNK, AS NEEDED (10MG TABLET, TAKE ONE OR TWO TABLETS A DAY)
     Route: 048
  12. DEPAKOTE [Concomitant]
     Active Substance: DIVALPROEX SODIUM
     Indication: MIGRAINE
     Dosage: 250 MG, 2X/DAY [TWICE A DAY]
     Route: 048
  13. LOSARTAN POTASSIUM. [Concomitant]
     Active Substance: LOSARTAN POTASSIUM
     Indication: BLOOD PRESSURE ABNORMAL
     Dosage: 50 MG, DAILY
     Route: 048
  14. AMLODIPINE [Concomitant]
     Active Substance: AMLODIPINE BESYLATE
     Indication: BLOOD PRESSURE ABNORMAL
     Dosage: 5 MG, 1X/DAY (IN THE MORNING)
     Route: 048
  15. ZANAFLEX [Concomitant]
     Active Substance: TIZANIDINE HYDROCHLORIDE
     Indication: MUSCLE SPASMS
     Dosage: UNK, AS NEEDED (4 TIMES A DAY AS NEEDED HE USUALLY TAKES IT TWICE A DAY)
     Route: 048
  16. SYMBICORT [Concomitant]
     Active Substance: BUDESONIDE\FORMOTEROL FUMARATE DIHYDRATE
     Indication: CONSTIPATION
     Dosage: 2 MG, AS NEEDED [TAKE AS NEEDED]
     Route: 048
  17. MORPHINE SULFATE. [Concomitant]
     Active Substance: MORPHINE SULFATE
     Indication: PAIN
     Dosage: 60 MG, DAILY (30MG TWO TABLETS TWICE A DAY)

REACTIONS (11)
  - Product dose omission issue [Unknown]
  - Dry mouth [Unknown]
  - Clavicle fracture [Unknown]
  - Stomach mass [Unknown]
  - Paraesthesia [Not Recovered/Not Resolved]
  - Cardiac disorder [Unknown]
  - Upper limb fracture [Unknown]
  - Haematoma [Unknown]
  - Injury [Unknown]
  - Fall [Unknown]
  - Concussion [Unknown]

NARRATIVE: CASE EVENT DATE: 20190829
